FAERS Safety Report 9011053 (Version 3)
Quarter: 2013Q1

REPORT INFORMATION
  Report Type: Spontaneous
  Country: US (occurrence: US)
  Receive Date: 20130109
  Receipt Date: 20130208
  Transmission Date: 20140127
  Serious: Yes (Hospitalization)
  Sender: FDA-Public Use
  Company Number: US-GLAXOSMITHKLINE-A1007311A

PATIENT
  Age: 60 Year
  Sex: Male

DRUGS (1)
  1. FLOLAN [Suspect]
     Indication: PRODUCT USED FOR UNKNOWN INDICATION
     Dosage: 49.5NGKM CONTINUOUS
     Route: 042
     Dates: start: 20110524

REACTIONS (2)
  - Dyspnoea [Unknown]
  - Adverse event [Unknown]
